FAERS Safety Report 7651252-6 (Version None)
Quarter: 2011Q3

REPORT INFORMATION
  Report Type: 
  Country: None (occurrence: None)
  Receive Date: 20110802
  Receipt Date: 20110720
  Transmission Date: 20111222
  Serious: Yes (Other)
  Sender: FDA-Public Use
  Company Number: US-ASTRAZENECA-2008UW00663

PATIENT
  Age: 45 Year
  Sex: Male
  Weight: 117 kg

DRUGS (30)
  1. SEROQUEL [Suspect]
     Indication: SCHIZOPHRENIA
     Route: 048
     Dates: start: 20030101, end: 20070701
  2. ENALAPRIL MALEATE [Concomitant]
     Dosage: SUFFICIENT QUANTITY
     Route: 048
     Dates: start: 20040429
  3. SEROQUEL [Suspect]
     Dosage: VARIOUS DOSES
     Route: 048
     Dates: start: 20030101, end: 20070701
  4. HALDOL [Concomitant]
     Dates: start: 20020501, end: 20060801
  5. GEODON [Concomitant]
     Dates: start: 20070101
  6. DOCUSATE SODIUM [Concomitant]
     Route: 048
     Dates: start: 20041019
  7. COGENTIN [Concomitant]
     Route: 048
     Dates: start: 20041019
  8. DEPAKOTE [Concomitant]
     Dates: start: 20020101
  9. ZYPREXA [Concomitant]
     Dosage: VARIOUS DOSES, INCLUDING BUT NOT LIMITED TO 20 MG
     Dates: start: 20020617, end: 20020101
  10. PROLIXIN [Concomitant]
  11. CLARINEX [Concomitant]
     Route: 048
     Dates: start: 20041019
  12. VASOTEC [Concomitant]
     Route: 048
     Dates: start: 20041019
  13. SEROQUEL [Suspect]
     Indication: DEPRESSION
     Route: 048
     Dates: start: 20030101, end: 20070701
  14. SEROQUEL [Suspect]
     Dosage: VARIOUS DOSES
     Route: 048
     Dates: start: 20030101, end: 20070701
  15. SEROQUEL [Suspect]
     Dosage: 200-400 MG
     Route: 048
     Dates: start: 20030101
  16. TRAZODONE HYDROCHLORIDE [Concomitant]
     Dates: start: 20020617
  17. LOXITANE [Concomitant]
     Dates: start: 20030401
  18. NIFEDIPINE [Concomitant]
     Route: 048
     Dates: start: 20040429
  19. PREVACID [Concomitant]
     Route: 048
     Dates: start: 20041019
  20. SEROQUEL [Suspect]
     Indication: BIPOLAR DISORDER
     Route: 048
     Dates: start: 20030101, end: 20070701
  21. THORAZINE [Concomitant]
     Dates: end: 19800101
  22. CLONIDINE [Concomitant]
     Route: 048
     Dates: start: 20041019
  23. SEROQUEL [Suspect]
     Dosage: VARIOUS DOSES
     Route: 048
     Dates: start: 20030101, end: 20070701
  24. SEROQUEL [Suspect]
     Dosage: 200-400 MG
     Route: 048
     Dates: start: 20030101
  25. SEROQUEL [Suspect]
     Dosage: 200-400 MG
     Route: 048
     Dates: start: 20030101
  26. LOXAPINE HCL [Concomitant]
     Dates: start: 20020101
  27. RISPERDAL [Concomitant]
     Dates: start: 20060801, end: 20070501
  28. TRICOR [Concomitant]
     Dosage: SUFFICIENT QUANTITY
     Route: 048
     Dates: start: 20040429
  29. COMBIVENT [Concomitant]
     Dosage: TWO TIMES A DAY
     Route: 045
     Dates: start: 20041019
  30. DIFLUCAN [Concomitant]
     Route: 048
     Dates: start: 20041019

REACTIONS (7)
  - TYPE 2 DIABETES MELLITUS [None]
  - INSULIN-REQUIRING TYPE 2 DIABETES MELLITUS [None]
  - PNEUMONIA [None]
  - CARDIAC DISORDER [None]
  - BLOOD TRIGLYCERIDES INCREASED [None]
  - DYSPNOEA [None]
  - HYPERTENSION [None]
